FAERS Safety Report 23895963 (Version 1)
Quarter: 2024Q2

REPORT INFORMATION
  Report Type: Spontaneous
  Country: SA (occurrence: SA)
  Receive Date: 20240524
  Receipt Date: 20240524
  Transmission Date: 20240715
  Serious: Yes (Other)
  Sender: FDA-Public Use
  Company Number: SA-IGSA-BIG0029063

PATIENT
  Age: 12 Year
  Sex: Male

DRUGS (1)
  1. HUMAN IMMUNOGLOBULIN G [Suspect]
     Active Substance: HUMAN IMMUNOGLOBULIN G
     Indication: Bruton^s agammaglobulinaemia
     Dosage: UNK UNKNOWN, Q.M.T.
     Route: 042

REACTIONS (5)
  - Immune-complex membranoproliferative glomerulonephritis [Recovering/Resolving]
  - Haematuria [Recovering/Resolving]
  - Proteinuria [Recovered/Resolved]
  - Hypertension [Recovered/Resolved]
  - Complement factor C3 decreased [Unknown]
